FAERS Safety Report 18961893 (Version 1)
Quarter: 2021Q1

REPORT INFORMATION
  Report Type: Spontaneous
  Country: FR (occurrence: FR)
  Receive Date: 20210303
  Receipt Date: 20210303
  Transmission Date: 20210420
  Serious: Yes (Other)
  Sender: FDA-Public Use
  Company Number: FR-SA-2018SA088799

PATIENT
  Age: 61 Year
  Sex: Male
  Weight: 78 kg

DRUGS (5)
  1. OMEPRAZOLE. [Concomitant]
     Active Substance: OMEPRAZOLE
     Dosage: 1 DF, QD
  2. CERDELGA [Suspect]
     Active Substance: ELIGLUSTAT
     Indication: GAUCHER^S DISEASE
     Dosage: 84 MG, QD
     Route: 048
  3. CERDELGA [Suspect]
     Active Substance: ELIGLUSTAT
     Dosage: 168 MG,QD
     Route: 048
     Dates: start: 201603, end: 201808
  4. CERDELGA [Suspect]
     Active Substance: ELIGLUSTAT
     Dosage: 84 MG, BID
     Route: 048
  5. CIALIS [Concomitant]
     Active Substance: TADALAFIL
     Route: 065

REACTIONS (14)
  - Bone pain [Recovered/Resolved]
  - Suicidal ideation [Recovering/Resolving]
  - Loss of libido [Recovering/Resolving]
  - Unevaluable event [Recovered/Resolved]
  - Dry skin [Recovering/Resolving]
  - Asthenia [Recovering/Resolving]
  - Depression [Recovering/Resolving]
  - Diarrhoea [Recovering/Resolving]
  - Psoriasis [Recovered/Resolved]
  - Weight decreased [Recovering/Resolving]
  - Erectile dysfunction [Recovering/Resolving]
  - Fatigue [Unknown]
  - Pain in extremity [Recovering/Resolving]
  - Skin exfoliation [Recovering/Resolving]

NARRATIVE: CASE EVENT DATE: 2016
